FAERS Safety Report 12077769 (Version 2)
Quarter: 2016Q1

REPORT INFORMATION
  Report Type: Spontaneous
  Country: US (occurrence: US)
  Receive Date: 20160215
  Receipt Date: 20160307
  Transmission Date: 20160526
  Serious: Yes (Other)
  Sender: FDA-Public Use
  Company Number: US-BAYER-2016-028247

PATIENT
  Age: 42 Year
  Sex: Female
  Weight: 89.34 kg

DRUGS (1)
  1. MIRENA [Suspect]
     Active Substance: LEVONORGESTREL
     Indication: CONTRACEPTION
     Dosage: 20 MCG/24HR, CONT
     Route: 015
     Dates: start: 20100115

REACTIONS (4)
  - Abdominal pain [Not Recovered/Not Resolved]
  - Device use issue [None]
  - Uterine perforation [Not Recovered/Not Resolved]
  - Device difficult to use [None]
